FAERS Safety Report 8154052-6 (Version None)
Quarter: 2012Q1

REPORT INFORMATION
  Report Type: 
  Country: None (occurrence: None)
  Receive Date: 20120221
  Receipt Date: 20120210
  Transmission Date: 20120608
  Serious: Yes (Life-Threatening, Hospitalization, Other)
  Sender: FDA-Public Use
  Company Number: NZ-BRISTOL-MYERS SQUIBB COMPANY-16395485

PATIENT
  Age: 51 Year
  Sex: Female
  Weight: 62 kg

DRUGS (8)
  1. MORPHINE [Concomitant]
     Dates: start: 20111121
  2. CODEINE SULFATE [Concomitant]
  3. ZOPICLONE [Concomitant]
  4. DOCETAXEL [Suspect]
     Indication: BREAST CANCER
     Dosage: LAST DOSE: 11NOV11 INTERRUPTED ON 30NOV2011 FREQ: EVERY 21 DAYS
     Dates: start: 20110909, end: 20111221
  5. HYPERICUM [Concomitant]
  6. PRILOSEC [Concomitant]
  7. CISPLATIN [Suspect]
     Indication: BREAST CANCER
     Dosage: LAST DOSE: 11NOV11 INTERRUPTED ON 30NOV2011. FREQ: EVERY 21 DAYS
     Dates: start: 20110909, end: 20111221
  8. VOLTAREN [Concomitant]

REACTIONS (6)
  - NEUTROPHIL COUNT DECREASED [None]
  - CELLULITIS [None]
  - HEPATIC FUNCTION ABNORMAL [None]
  - FATIGUE [None]
  - MUCOSAL INFLAMMATION [None]
  - HEPATIC CIRRHOSIS [None]
